FAERS Safety Report 24767556 (Version 1)
Quarter: 2024Q4

REPORT INFORMATION
  Report Type: Spontaneous
  Country: JP (occurrence: JP)
  Receive Date: 20241223
  Receipt Date: 20241223
  Transmission Date: 20250114
  Serious: Yes (Hospitalization)
  Sender: EISAI
  Company Number: JP-Eisai-202408008_LEN-HCC_P_1

PATIENT
  Sex: Female

DRUGS (2)
  1. LENVIMA [Suspect]
     Active Substance: LENVATINIB
     Indication: Hepatocellular carcinoma
     Route: 048
     Dates: start: 20240812, end: 20241111
  2. LENVIMA [Suspect]
     Active Substance: LENVATINIB
     Dosage: DOSE AND FREQUENCY UNKNOWN.
     Route: 048
     Dates: start: 2024, end: 2024

REACTIONS (2)
  - Ascites [Recovering/Resolving]
  - Arterial thrombosis [Recovering/Resolving]

NARRATIVE: CASE EVENT DATE: 20240101
